FAERS Safety Report 19473053 (Version 2)
Quarter: 2023Q1

REPORT INFORMATION
  Report Type: Spontaneous
  Country: US (occurrence: US)
  Receive Date: 20210629
  Receipt Date: 20230127
  Transmission Date: 20230418
  Serious: No
  Sender: FDA-Public Use
  Company Number: US-ORGANON-O2106USA001975

PATIENT
  Sex: Female

DRUGS (4)
  1. FOLLISTIM [Suspect]
     Active Substance: FOLLITROPIN
     Indication: Infertility female
     Dosage: 350 UNITS, EVERDAY
     Route: 058
     Dates: start: 20210505
  2. GANIRELIX ACETATE [Concomitant]
     Active Substance: GANIRELIX ACETATE
  3. PREGNYL [Concomitant]
     Active Substance: CHORIOGONADOTROPIN ALFA
  4. KURVELO [Concomitant]
     Active Substance: ETHINYL ESTRADIOL\LEVONORGESTREL

REACTIONS (1)
  - Constipation [Unknown]

NARRATIVE: CASE EVENT DATE: 20210101
